FAERS Safety Report 20863311 (Version 4)
Quarter: 2022Q2

REPORT INFORMATION
  Report Type: Report from Study
  Country: US (occurrence: None)
  Receive Date: 20220523
  Receipt Date: 20220614
  Transmission Date: 20220720
  Serious: Yes (Hospitalization, Other)
  Sender: FDA-Public Use
  Company Number: US-ROCHE-3095587

PATIENT
  Age: 72 Year
  Sex: Female
  Weight: 102 kg

DRUGS (3)
  1. ATEZOLIZUMAB [Suspect]
     Active Substance: ATEZOLIZUMAB
     Indication: Small cell lung cancer
     Dosage: LAST ADMINISTERED DATE - 02/FEB/2022
     Route: 041
     Dates: start: 20220202
  2. CARBOPLATIN [Suspect]
     Active Substance: CARBOPLATIN
     Indication: Small cell lung cancer
     Dosage: LAST ADMINISTERED DATE - 02/FEB/2022
     Route: 042
     Dates: start: 20220202
  3. ETOPOSIDE [Suspect]
     Active Substance: ETOPOSIDE
     Indication: Small cell lung cancer
     Dosage: LAST ADMINISTERED DATE - 04/FEB/2022
     Route: 042
     Dates: start: 20220202

REACTIONS (9)
  - Asthenia [Not Recovered/Not Resolved]
  - Blood creatinine increased [Recovered/Resolved]
  - Atrial fibrillation [Recovered/Resolved]
  - Hyperkalaemia [Recovered/Resolved]
  - Fall [Recovered/Resolved]
  - Neutrophil count decreased [Not Recovered/Not Resolved]
  - White blood cell count decreased [Not Recovered/Not Resolved]
  - Acute kidney injury [Unknown]
  - Muscular weakness [Unknown]

NARRATIVE: CASE EVENT DATE: 20220214
